FAERS Safety Report 16754842 (Version 2)
Quarter: 2025Q2

REPORT INFORMATION
  Report Type: Report from Study
  Country: US (occurrence: US)
  Receive Date: 20190829
  Receipt Date: 20250424
  Transmission Date: 20250717
  Serious: Yes (Hospitalization, Other)
  Sender: AUROBINDO
  Company Number: US-MYLANLABS-2019M1079991

PATIENT
  Age: 23 Year
  Sex: Female

DRUGS (11)
  1. HYDROXYCHLOROQUINE [Suspect]
     Active Substance: HYDROXYCHLOROQUINE
     Indication: Immunosuppressant drug therapy
     Route: 065
  2. AZITHROMYCIN [Suspect]
     Active Substance: AZITHROMYCIN
     Indication: Mycobacterial infection
     Route: 042
  3. AZITHROMYCIN ANHYDROUS [Suspect]
     Active Substance: AZITHROMYCIN ANHYDROUS
     Indication: Mycobacterial infection
     Route: 048
  4. LINEZOLID [Suspect]
     Active Substance: LINEZOLID
     Indication: Mycobacterial infection
     Route: 042
  5. MYCOPHENOLATE MOFETIL [Suspect]
     Active Substance: MYCOPHENOLATE MOFETIL
     Indication: Immunosuppressant drug therapy
     Route: 065
  6. CEFOXITIN [Suspect]
     Active Substance: CEFOXITIN SODIUM
     Indication: Mycobacterial infection
     Route: 042
  7. AMIKACIN [Suspect]
     Active Substance: AMIKACIN
     Indication: Mycobacterial infection
     Route: 065
  8. TIGECYCLINE [Suspect]
     Active Substance: TIGECYCLINE
     Indication: Mycobacterial infection
     Route: 042
  9. CLOFAZIMINE [Suspect]
     Active Substance: CLOFAZIMINE
     Indication: Mycobacterial infection
     Route: 065
  10. AMIKACIN [Suspect]
     Active Substance: AMIKACIN
     Indication: Mycobacterial infection
     Route: 042
  11. LINEZOLID [Suspect]
     Active Substance: LINEZOLID
     Indication: Mycobacterial infection
     Route: 048

REACTIONS (6)
  - Mycobacterial infection [Not Recovered/Not Resolved]
  - Arthritis bacterial [Unknown]
  - Osteomyelitis bacterial [Unknown]
  - Subcutaneous abscess [Unknown]
  - Pyrexia [Recovered/Resolved]
  - Treatment failure [Unknown]
